FAERS Safety Report 5709066-X (Version None)
Quarter: 2008Q2

REPORT INFORMATION
  Report Type: 
  Country: None (occurrence: None)
  Receive Date: 20080418
  Receipt Date: 20080409
  Transmission Date: 20081010
  Serious: Yes (Hospitalization, Other)
  Sender: FDA-Public Use
  Company Number: US-JNJFOC-20080302292

PATIENT
  Age: 27 Year
  Sex: Male

DRUGS (17)
  1. PREZISTA [Suspect]
     Indication: HIV INFECTION
     Route: 048
  2. ISENTRESS [Suspect]
     Indication: HIV INFECTION
     Route: 048
  3. TRIZIVIR [Suspect]
     Indication: HIV INFECTION
     Route: 065
  4. NORVIR [Suspect]
     Indication: HIV INFECTION
     Route: 065
  5. MAGNESIUM OXIDE [Concomitant]
     Route: 065
  6. ALENDRONATE SODIUM [Concomitant]
     Route: 065
  7. AMILORIDE HYDROCHLORIDE [Concomitant]
     Route: 065
  8. ASPIRIN [Concomitant]
     Route: 065
  9. AZITHROMYCIN [Concomitant]
     Route: 065
  10. CALCIUM CARBONATE [Concomitant]
     Route: 065
  11. DAPSONE [Concomitant]
     Route: 065
  12. POTASSIUM CHLORIDE [Concomitant]
     Route: 065
  13. PHENERGAN [Concomitant]
     Route: 065
  14. ZOLOFT [Concomitant]
     Route: 065
  15. TESTOSTERONE [Concomitant]
     Route: 065
  16. VITAMIN D [Concomitant]
     Route: 065
  17. ZOLPIDEM TARTRATE [Concomitant]
     Route: 065

REACTIONS (2)
  - ANAEMIA [None]
  - IMMUNE RECONSTITUTION SYNDROME [None]
